FAERS Safety Report 16081107 (Version 1)
Quarter: 2019Q1

REPORT INFORMATION
  Report Type: Spontaneous
  Country: IT (occurrence: IT)
  Receive Date: 20190316
  Receipt Date: 20190316
  Transmission Date: 20190418
  Serious: Yes (Hospitalization)
  Sender: FDA-Public Use
  Company Number: IT-ACCORD-113088

PATIENT
  Age: 88 Year
  Sex: Female

DRUGS (3)
  1. HALOPERIDOL. [Interacting]
     Active Substance: HALOPERIDOL
     Indication: AGITATION
     Dosage: STRENGTH: 2 MG / ML ORAL DROPS, SOLUTION
     Route: 048
  2. PROMAZINE [Interacting]
     Active Substance: PROMAZINE
     Indication: AGITATION
     Dosage: STRENGTH: 4 G / 100 ML
     Route: 048
     Dates: end: 20181023
  3. QUETIAPINE AHCL [Suspect]
     Active Substance: QUETIAPINE
     Indication: SENILE DEMENTIA
     Dosage: STRENGTH: 25 MG
     Route: 048

REACTIONS (2)
  - Drug interaction [Unknown]
  - Sopor [Recovered/Resolved]

NARRATIVE: CASE EVENT DATE: 20181023
